FAERS Safety Report 19944483 (Version 1)
Quarter: 2021Q4

REPORT INFORMATION
  Report Type: 
  Country: US (occurrence: US)
  Receive Date: 20211011
  Receipt Date: 20211011
  Transmission Date: 20220303
  Serious: No
  Sender: FDA-Public Use
  Company Number: US-C B FLEET CO INC-202009-US-003376

PATIENT
  Sex: Female

DRUGS (1)
  1. MONISTAT 7 7-DAY DISPOSABLE APPLICATORS [Suspect]
     Active Substance: MICONAZOLE NITRATE
     Indication: Fungal infection
     Dosage: USED FOR THREE NIGHTS
     Route: 067
     Dates: start: 20200911, end: 20200913

REACTIONS (1)
  - Vulvovaginal pain [Not Recovered/Not Resolved]
